FAERS Safety Report 5921334-5 (Version None)
Quarter: 2008Q4

REPORT INFORMATION
  Report Type: 
  Country: None (occurrence: None)
  Receive Date: 20081014
  Receipt Date: 20081008
  Transmission Date: 20090506
  Serious: Yes (Death)
  Sender: FDA-Public Use
  Company Number: 2008JP004867

PATIENT
  Age: 30 Year
  Sex: Female

DRUGS (1)
  1. TACROLIMUS [Suspect]
     Indication: LUPUS NEPHRITIS
     Dosage: ORAL
     Route: 048
     Dates: start: 20080326

REACTIONS (1)
  - PNEUMOCYSTIS JIROVECI PNEUMONIA [None]
